FAERS Safety Report 7394234-4 (Version None)
Quarter: 2011Q2

REPORT INFORMATION
  Report Type: 
  Country: None (occurrence: None)
  Receive Date: 20110405
  Receipt Date: 20110328
  Transmission Date: 20111010
  Serious: Yes (Other)
  Sender: FDA-Public Use
  Company Number: US-AMGEN-USASP2011006662

PATIENT
  Age: 76 Year
  Sex: Female

DRUGS (1)
  1. PROLIA [Suspect]
     Indication: OSTEOPOROSIS POSTMENOPAUSAL
     Dosage: 60 MG, Q6MO
     Dates: start: 20100101

REACTIONS (5)
  - DRY SKIN [None]
  - SKIN DISORDER [None]
  - MYALGIA [None]
  - WOUND INFECTION STAPHYLOCOCCAL [None]
  - ARTHRALGIA [None]
